FAERS Safety Report 25250014 (Version 1)
Quarter: 2025Q2

REPORT INFORMATION
  Report Type: Spontaneous
  Country: DE (occurrence: DE)
  Receive Date: 20250429
  Receipt Date: 20250429
  Transmission Date: 20250716
  Serious: Yes (Congenital Anomaly)
  Sender: ACCORD
  Company Number: None

PATIENT
  Age: 1 Day
  Sex: Female
  Weight: 3.45 kg

DRUGS (3)
  1. SERTRALINE [Suspect]
     Active Substance: SERTRALINE HYDROCHLORIDE
     Dosage: 75 (MG/D)
     Dates: start: 20220222, end: 20221114
  2. METHYLPHENIDATE [Suspect]
     Active Substance: METHYLPHENIDATE
     Dosage: 30 (MG/D)
     Dates: start: 20220222, end: 20221114
  3. INSULIN HUMAN [Concomitant]
     Active Substance: INSULIN HUMAN
     Dosage: 22 (IE/D)

REACTIONS (4)
  - Pulmonary artery stenosis [Recovered/Resolved]
  - Atrial septal defect [Recovered/Resolved]
  - Atrial septal defect [Recovered/Resolved]
  - Foetal exposure during pregnancy [Unknown]

NARRATIVE: CASE EVENT DATE: 20221101
